FAERS Safety Report 10493581 (Version 10)
Quarter: 2016Q2

REPORT INFORMATION
  Report Type: Spontaneous
  Country: US (occurrence: US)
  Receive Date: 20141002
  Receipt Date: 20160614
  Transmission Date: 20160815
  Serious: Yes (Hospitalization, Other)
  Sender: FDA-Public Use
  Company Number: US-GLAXOSMITHKLINE-A1085908A

PATIENT
  Age: 67 Year
  Sex: Female

DRUGS (31)
  1. NEXIUM [Concomitant]
     Active Substance: ESOMEPRAZOLE MAGNESIUM
  2. HYDROCHLOROTHIAZIDE. [Concomitant]
     Active Substance: HYDROCHLOROTHIAZIDE
  3. CLONAZEPAM. [Concomitant]
     Active Substance: CLONAZEPAM
  4. ALBUTEROL. [Concomitant]
     Active Substance: ALBUTEROL
     Route: 055
  5. ADVAIR HFA [Suspect]
     Active Substance: FLUTICASONE PROPIONATE\SALMETEROL XINAFOATE
     Indication: CHRONIC OBSTRUCTIVE PULMONARY DISEASE
     Dosage: 1 PUFF(S), BID
     Route: 055
     Dates: start: 2008
  6. ADVAIR HFA [Suspect]
     Active Substance: FLUTICASONE PROPIONATE\SALMETEROL XINAFOATE
     Dosage: UNK
  7. ADVAIR HFA [Suspect]
     Active Substance: FLUTICASONE PROPIONATE\SALMETEROL XINAFOATE
     Dosage: UNK
  8. VENTOLIN HFA [Suspect]
     Active Substance: ALBUTEROL SULFATE
     Indication: DYSPNOEA
     Dosage: 2 PUFF(S), QID
  9. OXYBUTYNIN [Concomitant]
     Active Substance: OXYBUTYNIN
  10. REMEVEN [Concomitant]
     Active Substance: UREA
  11. ADVAIR HFA [Suspect]
     Active Substance: FLUTICASONE PROPIONATE\SALMETEROL XINAFOATE
     Indication: ASTHMA
     Dosage: UNK
  12. VENTOLIN HFA [Suspect]
     Active Substance: ALBUTEROL SULFATE
     Indication: CHRONIC OBSTRUCTIVE PULMONARY DISEASE
     Dosage: 2 PUFF(S), PRN
     Route: 055
     Dates: start: 2012
  13. CITALOPRAM [Concomitant]
     Active Substance: CITALOPRAM HYDROBROMIDE
  14. EVISTA [Concomitant]
     Active Substance: RALOXIFENE HYDROCHLORIDE
  15. IBUPROFEN. [Concomitant]
     Active Substance: IBUPROFEN
  16. PREDNISONE. [Suspect]
     Active Substance: PREDNISONE
     Indication: PRODUCT USED FOR UNKNOWN INDICATION
  17. RALOXIFENE. [Concomitant]
     Active Substance: RALOXIFENE
  18. VOLTAREN [Concomitant]
     Active Substance: DICLOFENAC SODIUM
  19. ALBUTEROL/IPRATROPIUM [Concomitant]
     Active Substance: ALBUTEROL\IPRATROPIUM
     Route: 055
  20. FISH OIL [Concomitant]
     Active Substance: FISH OIL
  21. CLARINEX [Concomitant]
     Active Substance: DESLORATADINE
  22. NORCO [Concomitant]
     Active Substance: ACETAMINOPHEN\HYDROCODONE BITARTRATE
     Dosage: UNK, PRN
  23. NAPROXEN. [Concomitant]
     Active Substance: NAPROXEN
  24. SPIRIVA [Concomitant]
     Active Substance: TIOTROPIUM BROMIDE MONOHYDRATE
  25. MONTELUKAST [Concomitant]
     Active Substance: MONTELUKAST SODIUM
  26. BENZONATATE. [Concomitant]
     Active Substance: BENZONATATE
  27. POTASSIUM [Concomitant]
     Active Substance: POTASSIUM
  28. SINGULAIR [Concomitant]
     Active Substance: MONTELUKAST SODIUM
  29. MAGNESIUM [Concomitant]
     Active Substance: MAGNESIUM
  30. LUNESTA [Concomitant]
     Active Substance: ESZOPICLONE
  31. ASPIRIN + CAFFEINE + SALICYLAMIDE [Concomitant]
     Active Substance: ASPIRIN\CAFFEINE\SALICYLAMIDE

REACTIONS (20)
  - Chronic obstructive pulmonary disease [Unknown]
  - Sluggishness [Not Recovered/Not Resolved]
  - Lung infection [Recovered/Resolved]
  - Cough [Unknown]
  - Peripheral swelling [Recovering/Resolving]
  - White blood cell count increased [Unknown]
  - Fluid retention [Unknown]
  - Insomnia [Unknown]
  - Joint swelling [Recovering/Resolving]
  - Abdominal distension [Recovering/Resolving]
  - Muscle spasms [Unknown]
  - Rhinorrhoea [Recovering/Resolving]
  - Productive cough [Not Recovered/Not Resolved]
  - Lacrimation increased [Recovering/Resolving]
  - Blood cholesterol increased [Unknown]
  - Pollakiuria [Unknown]
  - Dyspnoea [Recovering/Resolving]
  - Infection [Not Recovered/Not Resolved]
  - Nasopharyngitis [Not Recovered/Not Resolved]
  - Inhalation therapy [Unknown]

NARRATIVE: CASE EVENT DATE: 201411
